FAERS Safety Report 6264528-4 (Version None)
Quarter: 2009Q3

REPORT INFORMATION
  Report Type: 
  Country: None (occurrence: None)
  Receive Date: 20090710
  Receipt Date: 20090701
  Transmission Date: 20100115
  Serious: Yes (Other)
  Sender: FDA-Public Use
  Company Number: NL-JNJFOC-20090702309

PATIENT
  Sex: Male
  Weight: 70 kg

DRUGS (8)
  1. PARACETAMOL [Suspect]
  2. PARACETAMOL [Suspect]
     Indication: DRUG USE FOR UNKNOWN INDICATION
  3. SIMVASTATIN [Suspect]
     Indication: DRUG USE FOR UNKNOWN INDICATION
  4. ASCAL [Concomitant]
  5. METOPROLOL [Concomitant]
  6. ZESTRIL [Concomitant]
  7. NEXIUM [Concomitant]
  8. LACTULOSE [Concomitant]

REACTIONS (1)
  - LIVER FUNCTION TEST ABNORMAL [None]
